FAERS Safety Report 15593204 (Version 3)
Quarter: 2019Q1

REPORT INFORMATION
  Report Type: Spontaneous
  Country: US (occurrence: US)
  Receive Date: 20181107
  Receipt Date: 20190101
  Transmission Date: 20190417
  Serious: No
  Sender: FDA-Public Use
  Company Number: US-PFIZER INC-2018445693

PATIENT
  Age: 62 Year
  Sex: Female

DRUGS (2)
  1. SUTENT [Suspect]
     Active Substance: SUNITINIB MALATE
     Dosage: 37.5 MG, ALTERNATE DAY (EVERY OTHER DAY)
     Route: 048
     Dates: start: 20180508
  2. SUTENT [Suspect]
     Active Substance: SUNITINIB MALATE
     Indication: RENAL CANCER
     Dosage: 37.5 MG, ALTERNATE DAY (EVERY OTHER DAY)
     Route: 048
     Dates: start: 20180817

REACTIONS (3)
  - Pain in extremity [Unknown]
  - Ageusia [Unknown]
  - Oral pain [Unknown]

NARRATIVE: CASE EVENT DATE: 20181029
